FAERS Safety Report 19271760 (Version 1)
Quarter: 2021Q2

REPORT INFORMATION
  Report Type: Spontaneous
  Country: FR (occurrence: FR)
  Receive Date: 20210519
  Receipt Date: 20210519
  Transmission Date: 20210717
  Serious: Yes (Death)
  Sender: FDA-Public Use
  Company Number: FR-AUROBINDO-AUR-APL-2021-019790

PATIENT
  Sex: Male

DRUGS (4)
  1. CYTARABINE. [Suspect]
     Active Substance: CYTARABINE
     Indication: TRANSPLANT
     Dosage: UNK
     Route: 041
     Dates: start: 20170919
  2. MELPHALAN. [Suspect]
     Active Substance: MELPHALAN
     Indication: TRANSPLANT
     Dosage: UNK
     Route: 041
     Dates: start: 20170919
  3. ETOPOSIDE. [Suspect]
     Active Substance: ETOPOSIDE
     Indication: TRANSPLANT
     Dosage: UNK
     Route: 041
     Dates: start: 20170919
  4. CARMUSTINE. [Suspect]
     Active Substance: CARMUSTINE
     Indication: TRANSPLANT
     Dosage: UNK
     Route: 041
     Dates: start: 20170919

REACTIONS (2)
  - Liver transplant [Fatal]
  - Venoocclusive disease [Fatal]

NARRATIVE: CASE EVENT DATE: 20170919
